FAERS Safety Report 8167589-0 (Version None)
Quarter: 2012Q1

REPORT INFORMATION
  Report Type: 
  Country: None (occurrence: None)
  Receive Date: 20120227
  Receipt Date: 20120221
  Transmission Date: 20120608
  Serious: Yes (Disabling)
  Sender: FDA-Public Use
  Company Number: DE-ROCHE-1037878

PATIENT
  Age: 71 Year
  Sex: Female
  Weight: 70 kg

DRUGS (3)
  1. LUCENTIS [Suspect]
     Route: 050
     Dates: start: 20120104
  2. BISOPROLOL FUMARATE [Concomitant]
     Dosage: FOR TWO YEARS
  3. LUCENTIS [Suspect]
     Indication: AGE-RELATED MACULAR DEGENERATION
     Route: 050
     Dates: start: 20080101

REACTIONS (1)
  - TENOSYNOVITIS [None]
